FAERS Safety Report 13498894 (Version 2)
Quarter: 2017Q2

REPORT INFORMATION
  Report Type: Report from Study
  Country: JP (occurrence: JP)
  Receive Date: 20170501
  Receipt Date: 20170510
  Transmission Date: 20170830
  Serious: Yes (Death)
  Sender: FDA-Public Use
  Company Number: PHJP2017JP014703

PATIENT
  Age: 68 Year
  Sex: Male
  Weight: 64.5 kg

DRUGS (2)
  1. ZYKADIA [Suspect]
     Active Substance: CERITINIB
     Indication: NON-SMALL CELL LUNG CANCER
     Dosage: 600 MG, QD
     Route: 048
     Dates: start: 20161028, end: 20161101
  2. ZYKADIA [Suspect]
     Active Substance: CERITINIB
     Dosage: 450 MG, QD
     Route: 048
     Dates: start: 20161110, end: 20161117

REACTIONS (5)
  - Blood creatinine increased [Unknown]
  - Nausea [Recovered/Resolved]
  - Vomiting [Recovered/Resolved]
  - Death [Fatal]
  - Diarrhoea [Unknown]

NARRATIVE: CASE EVENT DATE: 20161030
